FAERS Safety Report 15974435 (Version 4)
Quarter: 2019Q2

REPORT INFORMATION
  Report Type: Spontaneous
  Country: US (occurrence: US)
  Receive Date: 20190218
  Receipt Date: 20190419
  Transmission Date: 20190711
  Serious: Yes (Other)
  Sender: FDA-Public Use
  Company Number: US-SA-2019SA042394

PATIENT
  Age: 40 Year
  Sex: Female

DRUGS (4)
  1. OMNIPAQUE [Concomitant]
     Active Substance: IOHEXOL
     Dosage: UNK
     Dates: start: 20190110
  2. XYLOCAINE [Concomitant]
     Active Substance: LIDOCAINE HYDROCHLORIDE
     Dosage: UNK
     Dates: start: 20190110
  3. LEMTRADA [Suspect]
     Active Substance: ALEMTUZUMAB
     Dosage: 1
     Route: 041
     Dates: start: 20190107, end: 20190109
  4. MYLANTA [ALUMINIUM HYDROXIDE;MAGNESIUM HYDROXIDE;SIMETICONE] [Concomitant]
     Dosage: UNK
     Dates: start: 20190110

REACTIONS (23)
  - Sinus bradycardia [Recovered/Resolved]
  - Aspartate aminotransferase increased [Unknown]
  - White blood cell count increased [Unknown]
  - Pneumonitis [Recovered/Resolved]
  - Mean cell haemoglobin concentration decreased [Unknown]
  - Heart rate decreased [Unknown]
  - Computerised tomogram thorax abnormal [Unknown]
  - Blood glucose increased [Unknown]
  - Neutrophil count increased [Unknown]
  - Neutrophil percentage increased [Unknown]
  - Haemoptysis [Unknown]
  - Lymphocyte percentage decreased [Unknown]
  - Alanine aminotransferase increased [Unknown]
  - Cough [Recovered/Resolved]
  - Chest X-ray abnormal [Recovered/Resolved]
  - Fibrin D dimer increased [Unknown]
  - Protein total decreased [Unknown]
  - Pulmonary alveolar haemorrhage [Recovered/Resolved]
  - Hypersensitivity [Unknown]
  - Chest pain [Unknown]
  - Red blood cell count decreased [Unknown]
  - Monocyte count decreased [Unknown]
  - Lymphocyte count decreased [Unknown]

NARRATIVE: CASE EVENT DATE: 20190109
